FAERS Safety Report 18097260 (Version 7)
Quarter: 2020Q4

REPORT INFORMATION
  Report Type: Spontaneous
  Country: US (occurrence: US)
  Receive Date: 20200731
  Receipt Date: 20201126
  Transmission Date: 20210113
  Serious: Yes (Other)
  Sender: FDA-Public Use
  Company Number: US-SHIRE-US202023106

PATIENT
  Age: 33 Year
  Sex: Male

DRUGS (3)
  1. ADVATE [Suspect]
     Active Substance: ANTIHEMOPHILIC FACTOR, HUMAN RECOMBINANT
     Indication: PRODUCT USED FOR UNKNOWN INDICATION
     Dosage: 2400 INTERNATIONAL UNIT, UNKNOWN
     Route: 042
  2. ADVATE [Suspect]
     Active Substance: ANTIHEMOPHILIC FACTOR, HUMAN RECOMBINANT
     Indication: PRODUCT USED FOR UNKNOWN INDICATION
     Dosage: 2400 INTERNATIONAL UNIT, UNKNOWN
     Route: 042
  3. ADVATE [Suspect]
     Active Substance: ANTIHEMOPHILIC FACTOR, HUMAN RECOMBINANT
     Indication: PRODUCT USED FOR UNKNOWN INDICATION
     Dosage: 2400 INTERNATIONAL UNIT, UNKNOWN
     Route: 042

REACTIONS (5)
  - Inflammation [Unknown]
  - Joint injury [Unknown]
  - Arthralgia [Unknown]
  - Haemarthrosis [Unknown]
  - Joint swelling [Unknown]

NARRATIVE: CASE EVENT DATE: 20200702
